FAERS Safety Report 5840820-X (Version None)
Quarter: 2008Q3

REPORT INFORMATION
  Report Type: 
  Country: None (occurrence: None)
  Receive Date: 20080811
  Receipt Date: 20080728
  Transmission Date: 20090109
  Serious: Yes (Other)
  Sender: FDA-Public Use
  Company Number: DK-BOEHRINGER INGELHEIM GMBH, GERMANY-2007-DE-02292GD

PATIENT

DRUGS (8)
  1. PARACETAMOL [Suspect]
     Indication: PAIN
  2. ACETYLSALICYLIC ACID SRT [Suspect]
     Indication: PAIN
  3. IBUPROFEN [Suspect]
     Indication: PAIN
  4. MELOXICAM [Suspect]
     Indication: PAIN
  5. NAPROXEN [Suspect]
     Indication: PAIN
  6. PIROXICAM [Suspect]
     Indication: PAIN
  7. SERTRALINE [Suspect]
     Indication: DEPRESSION
  8. OXAZEPAM [Suspect]

REACTIONS (1)
  - FRACTURE [None]
